FAERS Safety Report 7078599-9 (Version None)
Quarter: 2010Q4

REPORT INFORMATION
  Report Type: 
  Country: None (occurrence: None)
  Receive Date: 20101102
  Receipt Date: 20101021
  Transmission Date: 20110411
  Serious: Yes (Hospitalization, Disabling, Other)
  Sender: FDA-Public Use
  Company Number: US-SANOFI-AVENTIS-A03200701986

PATIENT
  Age: 65 Year
  Sex: Male
  Weight: 117 kg

DRUGS (30)
  1. PLAVIX [Suspect]
     Dosage: UNIT DOSE: 75 MG
     Route: 048
     Dates: start: 20030101, end: 20060816
  2. PLAVIX [Suspect]
     Indication: CORONARY ARTERY DISEASE
     Dosage: UNIT DOSE: 75 MG
     Route: 048
     Dates: start: 20030101, end: 20060816
  3. PLAVIX [Suspect]
     Dosage: UNIT DOSE: 75 MG
     Route: 048
     Dates: start: 20050101, end: 20060824
  4. PLAVIX [Suspect]
     Dosage: UNIT DOSE: 75 MG
     Route: 048
     Dates: start: 20050101, end: 20060824
  5. PLAVIX [Suspect]
     Route: 065
     Dates: start: 19991019
  6. PLAVIX [Suspect]
     Route: 065
     Dates: start: 19991019
  7. ASPIRIN [Suspect]
     Route: 065
     Dates: end: 20060816
  8. COZAAR [Concomitant]
  9. COZAAR [Concomitant]
  10. PREDNISONE [Concomitant]
  11. LEVOTHYROXINE [Concomitant]
  12. LEVOTHYROXINE [Concomitant]
  13. LASIX [Concomitant]
  14. LASIX [Concomitant]
  15. GLIPIZIDE [Concomitant]
  16. OMEPRAZOLE [Concomitant]
  17. COREG [Concomitant]
  18. AVANDIA [Concomitant]
  19. GLYCERYL TRINITRATE [Concomitant]
  20. MULTI-VITAMINS [Concomitant]
  21. ANDROGEL [Concomitant]
     Dosage: 6 PUMPS DAILY
  22. WARFARIN [Concomitant]
  23. FUROSEMIDE [Concomitant]
  24. COLCHICINE [Concomitant]
  25. VYTORIN [Concomitant]
  26. ALTACE [Concomitant]
  27. CADUET COMBINATION [Concomitant]
     Dosage: 5/10 MG
  28. DIGOXIN [Concomitant]
  29. ATORVASTATIN [Concomitant]
  30. ESOMEPRAZOLE [Concomitant]

REACTIONS (15)
  - ABDOMINAL PAIN UPPER [None]
  - ANAEMIA [None]
  - ANGINA PECTORIS [None]
  - CARDIAC FAILURE CONGESTIVE [None]
  - DEEP VEIN THROMBOSIS [None]
  - DRUG HYPERSENSITIVITY [None]
  - DYSPNOEA EXERTIONAL [None]
  - GAIT DISTURBANCE [None]
  - HYPOTENSION [None]
  - MENTAL STATUS CHANGES [None]
  - PLATELET COUNT DECREASED [None]
  - PYREXIA [None]
  - RENAL FAILURE ACUTE [None]
  - SOMNOLENCE [None]
  - THROMBOTIC THROMBOCYTOPENIC PURPURA [None]
